FAERS Safety Report 26095970 (Version 1)
Quarter: 2025Q4

REPORT INFORMATION
  Report Type: Spontaneous
  Country: US (occurrence: US)
  Receive Date: 20251127
  Receipt Date: 20251127
  Transmission Date: 20260118
  Serious: Yes (Other)
  Sender: Invivyd
  Company Number: US-INVIVYD-US-INV-25-000316

PATIENT
  Age: 62 Year
  Sex: Female

DRUGS (1)
  1. PEMGARDA [Suspect]
     Active Substance: PEMIVIBART
     Indication: Product used for unknown indication
     Dosage: UNK
     Route: 042
     Dates: start: 20251114, end: 20251114

REACTIONS (3)
  - Migraine [Recovered/Resolved]
  - Fatigue [Recovered/Resolved]
  - Pain [Recovered/Resolved]

NARRATIVE: CASE EVENT DATE: 20251114
